FAERS Safety Report 15720278 (Version 1)
Quarter: 2018Q4

REPORT INFORMATION
  Report Type: Spontaneous
  Country: DE (occurrence: DE)
  Receive Date: 20181213
  Receipt Date: 20181213
  Transmission Date: 20190205
  Serious: Yes (Other)
  Sender: FDA-Public Use
  Company Number: DE-B.I. PHARMACEUTICALS,INC./RIDGEFIELD-2018-BI-059242

PATIENT
  Sex: Female

DRUGS (6)
  1. GILOTRIF [Suspect]
     Active Substance: AFATINIB
     Indication: ADENOCARCINOMA
     Dosage: DAILY DOSE 40MG
     Route: 065
     Dates: start: 20160127
  2. GILOTRIF [Suspect]
     Active Substance: AFATINIB
     Dosage: DAILY DOSE 20 MILLIGRAM
     Route: 065
     Dates: start: 20160218
  3. GILOTRIF [Suspect]
     Active Substance: AFATINIB
     Route: 065
     Dates: start: 20160303
  4. GILOTRIF [Suspect]
     Active Substance: AFATINIB
     Route: 065
     Dates: start: 20180130
  5. GILOTRIF [Suspect]
     Active Substance: AFATINIB
     Dosage: DAILY DOSE 20MG
     Route: 065
  6. XGEVA [Concomitant]
     Active Substance: DENOSUMAB
     Indication: PRODUCT USED FOR UNKNOWN INDICATION
     Route: 058

REACTIONS (10)
  - Effusion [Unknown]
  - Pleural effusion [Unknown]
  - Diarrhoea [Unknown]
  - Dyspnoea exertional [Unknown]
  - Malignant neoplasm progression [Unknown]
  - Lung disorder [Unknown]
  - Pneumothorax [Recovering/Resolving]
  - Jaw operation [Unknown]
  - Pneumothorax spontaneous [Unknown]
  - Rash [Unknown]

NARRATIVE: CASE EVENT DATE: 20160303
